FAERS Safety Report 12596082 (Version 1)
Quarter: 2016Q3

REPORT INFORMATION
  Report Type: Report from Study
  Country: US (occurrence: US)
  Receive Date: 20160726
  Receipt Date: 20160726
  Transmission Date: 20161109
  Serious: No
  Sender: FDA-Public Use
  Company Number: US-AMGEN-USASL2016025086

PATIENT
  Age: 69 Year
  Sex: Female

DRUGS (3)
  1. KYPROLIS [Suspect]
     Active Substance: CARFILZOMIB
     Indication: PLASMA CELL MYELOMA
     Dosage: 3 WEEKS AND THEN HAS 1 WEEK OFF
     Route: 065
     Dates: start: 2015, end: 20160218
  2. ZOMETA [Concomitant]
     Active Substance: ZOLEDRONIC ACID
     Dosage: UNK
  3. KYPROLIS [Suspect]
     Active Substance: CARFILZOMIB
     Dosage: 2 DAYS WEEKLY EVERY OTHER WEEK
     Route: 065

REACTIONS (3)
  - Tooth disorder [Unknown]
  - Off label use [Unknown]
  - Hypertension [Recovering/Resolving]
